FAERS Safety Report 22037926 (Version 2)
Quarter: 2023Q1

REPORT INFORMATION
  Report Type: Report from Study
  Country: FR (occurrence: FR)
  Receive Date: 20230227
  Receipt Date: 20230314
  Transmission Date: 20230417
  Serious: Yes (Other)
  Sender: FDA-Public Use
  Company Number: FR-ABBVIE-4317531

PATIENT
  Age: 72 Year
  Sex: Female

DRUGS (3)
  1. CARBIDOPA\LEVODOPA [Suspect]
     Active Substance: CARBIDOPA\LEVODOPA
     Indication: Parkinson^s disease
     Dosage: 4 EXTRA DOSES
     Route: 050
     Dates: start: 20230207
  2. CARBIDOPA\LEVODOPA [Suspect]
     Active Substance: CARBIDOPA\LEVODOPA
  3. BENSERAZIDE HYDROCHLORIDE\LEVODOPA [Concomitant]
     Active Substance: BENSERAZIDE HYDROCHLORIDE\LEVODOPA
     Indication: Product used for unknown indication
     Dosage: 2.5 TABLET

REACTIONS (11)
  - Gastrooesophageal reflux disease [Unknown]
  - Hypertension [Unknown]
  - On and off phenomenon [Unknown]
  - Tremor [Unknown]
  - Bradykinesia [Unknown]
  - Anxiety [Unknown]
  - Abdominal pain [Unknown]
  - Dyspnoea [Unknown]
  - Fatigue [Unknown]
  - Therapeutic product effect incomplete [Unknown]
  - Freezing phenomenon [Unknown]

NARRATIVE: CASE EVENT DATE: 20230101
